FAERS Safety Report 25523440 (Version 2)
Quarter: 2025Q4

REPORT INFORMATION
  Report Type: Spontaneous
  Country: EU (occurrence: EU)
  Receive Date: 20250707
  Receipt Date: 20251008
  Transmission Date: 20260118
  Serious: Yes (Hospitalization)
  Sender: LEO PHARM
  Company Number: None

PATIENT
  Age: 43 Year
  Sex: Female

DRUGS (2)
  1. ENSTILAR [Suspect]
     Active Substance: BETAMETHASONE DIPROPIONATE\CALCIPOTRIENE HYDRATE
     Indication: Psoriasis
     Dosage: 50 MICROGRAMS/0.5?MG/G, CUTANEOUS FOAM
     Dates: start: 202505
  2. VITAMIN B12 [Suspect]
     Active Substance: CYANOCOBALAMIN
     Indication: Pernicious anaemia
     Dosage: GERDA 1,000 ?G/4 ML, SOLUTION FOR INJECTION (IM) AND ORAL USE
     Route: 030
     Dates: start: 20250613, end: 20250613

REACTIONS (4)
  - Rash maculo-papular [Recovering/Resolving]
  - Eczema [Recovering/Resolving]
  - Dermatitis psoriasiform [Recovering/Resolving]
  - Pustule [Recovered/Resolved]

NARRATIVE: CASE EVENT DATE: 20250619
